FAERS Safety Report 26124871 (Version 1)
Quarter: 2025Q4

REPORT INFORMATION
  Report Type: Report from Study
  Country: US (occurrence: US)
  Receive Date: 20251205
  Receipt Date: 20251205
  Transmission Date: 20260118
  Serious: Yes (Other)
  Sender: JOHNSON AND JOHNSON
  Company Number: US-JNJFOC-20251160915

PATIENT
  Age: 70 Year
  Sex: Male

DRUGS (4)
  1. SPRAVATO [Suspect]
     Active Substance: ESKETAMINE
     Indication: Depression
     Dosage: ?84MG, 56 TOTAL DOSES?
     Route: 045
     Dates: start: 20240725, end: 20251105
  2. SPRAVATO [Suspect]
     Active Substance: ESKETAMINE
     Dosage: ?56 MG, 2 TOTAL DOSES?
     Route: 045
     Dates: start: 20240715, end: 20240718
  3. SPRAVATO [Suspect]
     Active Substance: ESKETAMINE
     Dosage: ?84MG, 1 TOTAL DOSES?
     Route: 045
     Dates: start: 20251110, end: 20251110
  4. ADDERALL [Concomitant]
     Active Substance: AMPHETAMINE ASPARTATE\AMPHETAMINE SULFATE\DEXTROAMPHETAMINE SACCHARATE\DEXTROAMPHETAMINE SULFATE
     Indication: Product used for unknown indication

REACTIONS (1)
  - Hypertension [Unknown]

NARRATIVE: CASE EVENT DATE: 20251110
